FAERS Safety Report 12651147 (Version 1)
Quarter: 2016Q3

REPORT INFORMATION
  Report Type: Spontaneous
  Country: US (occurrence: US)
  Receive Date: 20160815
  Receipt Date: 20160815
  Transmission Date: 20161109
  Serious: No
  Sender: FDA-Public Use
  Company Number: US-JAZZ-2016-US-005185

PATIENT
  Sex: Male

DRUGS (32)
  1. AMIODARONE HCL [Concomitant]
     Active Substance: AMIODARONE HYDROCHLORIDE
  2. FUROSEMIDE. [Concomitant]
     Active Substance: FUROSEMIDE
  3. METFORMIN [Concomitant]
     Active Substance: METFORMIN HYDROCHLORIDE
  4. LIPITOR [Concomitant]
     Active Substance: ATORVASTATIN CALCIUM
  5. POTASSIUM [Concomitant]
     Active Substance: POTASSIUM
  6. SIMVASTATIN. [Concomitant]
     Active Substance: SIMVASTATIN
  7. ZANTAC [Concomitant]
     Active Substance: RANITIDINE HYDROCHLORIDE
  8. KLOR-CON [Concomitant]
     Active Substance: POTASSIUM CHLORIDE
  9. RAPAFLO [Concomitant]
     Active Substance: SILODOSIN
  10. RITALIN [Concomitant]
     Active Substance: METHYLPHENIDATE HYDROCHLORIDE
  11. XYREM [Suspect]
     Active Substance: SODIUM OXYBATE
     Indication: SLEEP DISORDER
     Dosage: 3 G, BID
     Route: 048
     Dates: start: 200802, end: 201203
  12. XYREM [Suspect]
     Active Substance: SODIUM OXYBATE
     Dosage: 3.5 G, BID
     Route: 048
     Dates: start: 201511
  13. KEFLEX [Concomitant]
     Active Substance: CEPHALEXIN
  14. ATENOLOL. [Concomitant]
     Active Substance: ATENOLOL
  15. FOLIC ACID. [Concomitant]
     Active Substance: FOLIC ACID
  16. OMEGA 3 FISH OIL [Concomitant]
     Active Substance: FISH OIL\OMEGA-3 FATTY ACIDS
  17. GLYBURIDE. [Concomitant]
     Active Substance: GLYBURIDE
  18. LISINOPRIL. [Concomitant]
     Active Substance: LISINOPRIL
  19. PENTOXIFYLLINE. [Concomitant]
     Active Substance: PENTOXIFYLLINE
  20. AMBIEN CR [Concomitant]
     Active Substance: ZOLPIDEM TARTRATE
  21. ASPIRIN. [Concomitant]
     Active Substance: ASPIRIN
  22. XYREM [Suspect]
     Active Substance: SODIUM OXYBATE
     Dosage: DOSE ADJUSTMENTS
     Route: 048
  23. ISOSORBIDE. [Concomitant]
     Active Substance: ISOSORBIDE
  24. BACTROBAN [Concomitant]
     Active Substance: MUPIROCIN\MUPIROCIN CALCIUM
  25. COLACE [Concomitant]
     Active Substance: DOCUSATE SODIUM
  26. EXELON [Concomitant]
     Active Substance: RIVASTIGMINE TARTRATE
  27. GLUCOPHAGE [Concomitant]
     Active Substance: METFORMIN HYDROCHLORIDE
  28. NITROGLYCERIN. [Concomitant]
     Active Substance: NITROGLYCERIN
  29. FAMOTIDINE. [Concomitant]
     Active Substance: FAMOTIDINE
  30. GABAPENTIN. [Concomitant]
     Active Substance: GABAPENTIN
  31. VITAMINS [Concomitant]
     Active Substance: VITAMINS
  32. WARFARIN SODIUM. [Concomitant]
     Active Substance: WARFARIN SODIUM

REACTIONS (4)
  - Balance disorder [Unknown]
  - Irritable bowel syndrome [Not Recovered/Not Resolved]
  - Amnesia [Unknown]
  - Dizziness [Unknown]

NARRATIVE: CASE EVENT DATE: 2013
